FAERS Safety Report 15326708 (Version 2)
Quarter: 2018Q3

REPORT INFORMATION
  Report Type: Spontaneous
  Country: BR (occurrence: BR)
  Receive Date: 20180828
  Receipt Date: 20180903
  Transmission Date: 20181010
  Serious: Yes (Death, Hospitalization, Other)
  Sender: FDA-Public Use
  Company Number: BR-ALEXION PHARMACEUTICALS INC.-A201811206

PATIENT
  Age: 44 Year
  Sex: Female

DRUGS (2)
  1. SOLIRIS [Suspect]
     Active Substance: ECULIZUMAB
     Indication: ATYPICAL HAEMOLYTIC URAEMIC SYNDROME
     Dosage: 900 MG, EVERY 7 DAYS
     Route: 042
     Dates: start: 20160116, end: 20160204
  2. SOLIRIS [Suspect]
     Active Substance: ECULIZUMAB
     Dosage: 1200 MG, EVERY 14 DAYS
     Route: 042
     Dates: start: 20160211

REACTIONS (6)
  - Chronic kidney disease [Unknown]
  - Hypertension [Unknown]
  - Septic shock [Fatal]
  - Ovarian mass [Unknown]
  - Fatigue [Unknown]
  - Somnolence [Unknown]

NARRATIVE: CASE EVENT DATE: 20180819
